FAERS Safety Report 13656963 (Version 1)
Quarter: 2017Q2

REPORT INFORMATION
  Report Type: Spontaneous
  Country: US (occurrence: US)
  Receive Date: 20170615
  Receipt Date: 20170615
  Transmission Date: 20170830
  Serious: Yes (Hospitalization)
  Sender: FDA-Public Use
  Company Number: US-ALKERMES INC.-ALK-2017-002367

PATIENT
  Age: 72 Year
  Sex: Female
  Weight: 41.72 kg

DRUGS (1)
  1. VIVITROL [Suspect]
     Active Substance: NALTREXONE
     Indication: ALCOHOLISM
     Dosage: 380 MG, QMO
     Route: 030
     Dates: start: 20170601

REACTIONS (5)
  - Confusional state [Unknown]
  - Decreased appetite [Unknown]
  - Loss of personal independence in daily activities [Unknown]
  - Urinary tract infection [Unknown]
  - Blood pressure increased [Unknown]

NARRATIVE: CASE EVENT DATE: 20170607
